FAERS Safety Report 19115736 (Version 6)
Quarter: 2022Q3

REPORT INFORMATION
  Report Type: Spontaneous
  Country: ES (occurrence: ES)
  Receive Date: 20210409
  Receipt Date: 20220708
  Transmission Date: 20221026
  Serious: Yes (Other)
  Sender: FDA-Public Use
  Company Number: ES-PFIZER INC-2021061175

PATIENT
  Age: 68 Year
  Sex: Female

DRUGS (4)
  1. PHENYTOIN SODIUM [Suspect]
     Active Substance: PHENYTOIN SODIUM
     Indication: Craniocerebral injury
     Dosage: 400 MG, DAILY
  2. PHENYTOIN SODIUM [Suspect]
     Active Substance: PHENYTOIN SODIUM
     Dosage: 100 MG
  3. PHENYTOIN [Suspect]
     Active Substance: PHENYTOIN
     Indication: Craniocerebral injury
     Dosage: UNK
  4. COMIRNATY [Concomitant]
     Active Substance: TOZINAMERAN
     Indication: COVID-19 immunisation
     Dosage: DOSE 1, SINGLE

REACTIONS (7)
  - Drowning [Unknown]
  - Off label use [Unknown]
  - Drug effective for unapproved indication [Unknown]
  - Insomnia [Unknown]
  - Nervousness [Unknown]
  - Fear [Unknown]
  - Intentional product misuse [Unknown]
